FAERS Safety Report 11275716 (Version 1)
Quarter: 2015Q3

REPORT INFORMATION
  Report Type: Spontaneous
  Country: US (occurrence: None)
  Receive Date: 20150715
  Receipt Date: 20150715
  Transmission Date: 20151125
  Serious: Yes (Hospitalization)
  Sender: FDA-Public Use
  Company Number: None

PATIENT
  Age: 42 Year
  Sex: Female
  Weight: 72.12 kg

DRUGS (8)
  1. INVOKANA [Suspect]
     Active Substance: CANAGLIFLOZIN
     Indication: BLOOD GLUCOSE INCREASED
     Dates: start: 20150703, end: 20150703
  2. VELAFAXINE [Concomitant]
  3. ASPIRIN. [Concomitant]
     Active Substance: ASPIRIN
  4. TIZANIDINE. [Concomitant]
     Active Substance: TIZANIDINE
  5. BENICAR [Concomitant]
     Active Substance: OLMESARTAN MEDOXOMIL
  6. TOPAMAX [Concomitant]
     Active Substance: TOPIRAMATE
  7. CYCLOBENZAPINE [Concomitant]
  8. JANUMENT [Concomitant]

REACTIONS (2)
  - Diabetic ketoacidosis [None]
  - Diarrhoea [None]

NARRATIVE: CASE EVENT DATE: 20150703
